FAERS Safety Report 9078884 (Version 1)
Quarter: 2013Q1

REPORT INFORMATION
  Report Type: Report from Study
  Country: US (occurrence: US)
  Receive Date: 20130130
  Receipt Date: 20130130
  Transmission Date: 20140127
  Serious: No
  Sender: FDA-Public Use
  Company Number: US-ABBOTT-12P-163-0976796-00

PATIENT
  Age: 34 Year
  Sex: Female

DRUGS (6)
  1. HUMIRA [Suspect]
     Indication: RHEUMATOID ARTHRITIS
     Dates: start: 201206
  2. CYMBALTA [Concomitant]
     Indication: DEPRESSION
  3. CLONAZEPAM [Concomitant]
     Indication: ANXIETY
  4. LEFLUNOMIDE [Concomitant]
     Indication: ARTHRITIS
  5. PREDNISONE [Concomitant]
     Indication: ARTHRITIS
  6. FIORICET [Concomitant]
     Indication: MIGRAINE

REACTIONS (1)
  - Depression [Not Recovered/Not Resolved]
